FAERS Safety Report 24792589 (Version 1)
Quarter: 2024Q4

REPORT INFORMATION
  Report Type: Spontaneous
  Country: CR (occurrence: CR)
  Receive Date: 20241231
  Receipt Date: 20241231
  Transmission Date: 20250115
  Serious: Yes (Hospitalization, Other)
  Sender: STRIDES
  Company Number: CR-STRIDES ARCOLAB LIMITED-2024SP017207

PATIENT

DRUGS (9)
  1. PREDNISOLONE [Suspect]
     Active Substance: PREDNISOLONE
     Indication: Product used for unknown indication
     Dosage: UNK (PATIENT MOTHER RECEIVED 40MG/DAY)
     Route: 064
  2. PREDNISOLONE [Suspect]
     Active Substance: PREDNISOLONE
     Dosage: UNK (PATIENT MOTHER RECEIVED REDUCED DOSE)
     Route: 064
  3. PREDNISOLONE [Suspect]
     Active Substance: PREDNISOLONE
     Dosage: UNK (PATIENT MOTHER RECEIVED 15MG/DAY)
     Route: 064
  4. PREDNISOLONE [Suspect]
     Active Substance: PREDNISOLONE
     Dosage: UNK, (PATIENT MOTHER RECEIVED INCREASED DOSE
     Route: 064
  5. DEFLAZACORT [Suspect]
     Active Substance: DEFLAZACORT
     Indication: Product used for unknown indication
     Dosage: UNK (PATIENT MOTHER RECEIVED 30MG/DAY)
     Route: 064
  6. DEFLAZACORT [Suspect]
     Active Substance: DEFLAZACORT
     Dosage: UNK (PATIENT MOTHER RECEIVED 60MG/DAY)
     Route: 064
  7. METHYLPREDNISOLONE [Suspect]
     Active Substance: METHYLPREDNISOLONE
     Indication: Product used for unknown indication
     Dosage: UNK (PATIENT MOTHER RECEIVED 250MG/DAY)
     Route: 064
  8. IMMUNE GLOBULIN NOS [Suspect]
     Active Substance: IMMUNE GLOBULIN NOS
     Indication: Product used for unknown indication
     Dosage: UNK (PATIENT MOTHER RECEIVED 2G/KG)
     Route: 064
  9. SULFAMETHOXAZOLE\TRIMETHOPRIM [Suspect]
     Active Substance: SULFAMETHOXAZOLE\TRIMETHOPRIM
     Indication: Product used for unknown indication
     Dosage: UNK (PATIENT MOTHER RECIEVED THREE TIMES/WEEK)
     Route: 064

REACTIONS (2)
  - Low birth weight baby [Unknown]
  - Foetal exposure during pregnancy [Unknown]
